APPROVED DRUG PRODUCT: RIFAMPIN
Active Ingredient: RIFAMPIN
Strength: 600MG/VIAL
Dosage Form/Route: INJECTABLE;INJECTION
Application: A065421 | Product #001 | TE Code: AP
Applicant: MYLAN LABORATORIES LTD
Approved: May 22, 2008 | RLD: No | RS: No | Type: RX